FAERS Safety Report 10094780 (Version 1)
Quarter: 2014Q2

REPORT INFORMATION
  Report Type: Spontaneous
  Country: US (occurrence: None)
  Receive Date: 20140421
  Receipt Date: 20140421
  Transmission Date: 20141212
  Serious: No
  Sender: FDA-Public Use
  Company Number: None

PATIENT
  Age: 91 Year
  Sex: Female
  Weight: 60.9 kg

DRUGS (5)
  1. FORTEO [Suspect]
     Indication: SENILE OSTEOPOROSIS
     Dosage: 20MCG, DAILY, SUBCUTANEOUSLY
     Route: 058
     Dates: start: 20140111
  2. FORTEO [Suspect]
     Indication: PATHOLOGICAL FRACTURE
     Dosage: 20MCG, DAILY, SUBCUTANEOUSLY
     Route: 058
     Dates: start: 20140111
  3. COUMADIN [Concomitant]
  4. TRAMADOL [Concomitant]
  5. EDECRIN WITH K+ [Concomitant]

REACTIONS (1)
  - Hypertension [None]
